FAERS Safety Report 9263364 (Version 1)
Quarter: 2013Q2

REPORT INFORMATION
  Report Type: Spontaneous
  Country: US (occurrence: US)
  Receive Date: 20130430
  Receipt Date: 20130430
  Transmission Date: 20140414
  Serious: No
  Sender: FDA-Public Use
  Company Number: US-ABBOTT-12P-163-1006418-00

PATIENT
  Sex: Female
  Weight: 53.12 kg

DRUGS (8)
  1. CREON 24 [Suspect]
     Indication: PANCREATIC INSUFFICIENCY
     Dosage: ONE WITH EACH MEAL AND TWO WITH THE MAIN MEAL
     Dates: start: 201105
  2. BETAPACE [Concomitant]
     Indication: ATRIAL FIBRILLATION
  3. CYMBALTA [Concomitant]
     Indication: BACK PAIN
  4. OXYCODONE [Concomitant]
     Indication: BACK PAIN
  5. NEXIUM [Concomitant]
     Indication: PRODUCT USED FOR UNKNOWN INDICATION
  6. DILTIAZEM [Concomitant]
     Indication: CARDIAC DISORDER
  7. METAMUCIL [Concomitant]
     Indication: CONSTIPATION
  8. MIRALAX [Concomitant]
     Indication: CONSTIPATION

REACTIONS (3)
  - Anorectal discomfort [Not Recovered/Not Resolved]
  - Flatulence [Not Recovered/Not Resolved]
  - Diarrhoea [Not Recovered/Not Resolved]
